FAERS Safety Report 25215650 (Version 1)
Quarter: 2025Q2

REPORT INFORMATION
  Report Type: Spontaneous
  Country: US (occurrence: US)
  Receive Date: 20250418
  Receipt Date: 20250418
  Transmission Date: 20250716
  Serious: No
  Sender: Phathom Pharmaceuticals
  Company Number: US-PHATHOM PHARMACEUTICALS INC.-2025PHT00606

PATIENT
  Sex: Male

DRUGS (3)
  1. VOQUEZNA [Suspect]
     Active Substance: VONOPRAZAN FUMARATE
     Indication: Oesophageal ulcer
     Dosage: 20 MG, 1X/DAY
     Route: 048
     Dates: start: 20250224, end: 20250317
  2. IBUPROFEN [Concomitant]
     Active Substance: IBUPROFEN
  3. CODEINE [Concomitant]
     Active Substance: CODEINE

REACTIONS (2)
  - Abdominal pain upper [Unknown]
  - Oesophageal ulcer [Unknown]

NARRATIVE: CASE EVENT DATE: 20250101
